FAERS Safety Report 18042341 (Version 3)
Quarter: 2020Q4

REPORT INFORMATION
  Report Type: Spontaneous
  Country: GB (occurrence: GB)
  Receive Date: 20200720
  Receipt Date: 20201202
  Transmission Date: 20210113
  Serious: Yes (Hospitalization)
  Sender: FDA-Public Use
  Company Number: GB-APOTEX-2020AP013900

PATIENT

DRUGS (3)
  1. SEROXAT [Suspect]
     Active Substance: PAROXETINE HYDROCHLORIDE
     Indication: PERINATAL DEPRESSION
     Dosage: 10 MG
     Route: 065
     Dates: start: 1987
  2. SEROXAT [Suspect]
     Active Substance: PAROXETINE HYDROCHLORIDE
     Dosage: 20 MG
     Route: 065
  3. SEROXAT [Suspect]
     Active Substance: PAROXETINE HYDROCHLORIDE
     Dosage: 30 MG
     Route: 065
     Dates: end: 2015

REACTIONS (23)
  - Hospitalisation [Unknown]
  - Fatigue [Unknown]
  - Anger [Unknown]
  - Withdrawal syndrome [Unknown]
  - Paranoia [Unknown]
  - Adverse drug reaction [Unknown]
  - Alopecia [Unknown]
  - Nervousness [Unknown]
  - Crying [Unknown]
  - Hypoaesthesia [Unknown]
  - Disorientation [Unknown]
  - Loss of libido [Unknown]
  - Paraesthesia [Unknown]
  - Psychiatric symptom [Unknown]
  - Feeling abnormal [Unknown]
  - Stress [Unknown]
  - Tooth extraction [Unknown]
  - Emotional poverty [Unknown]
  - Divorced [Unknown]
  - Hyperhidrosis [Unknown]
  - Psychotic disorder [Unknown]
  - Palpitations [Unknown]
  - Depressed mood [Unknown]
